FAERS Safety Report 16212312 (Version 2)
Quarter: 2023Q1

REPORT INFORMATION
  Report Type: Spontaneous
  Country: US (occurrence: US)
  Receive Date: 20190418
  Receipt Date: 20230106
  Transmission Date: 20230417
  Serious: Yes (Other)
  Sender: FDA-Public Use
  Company Number: US-JNJFOC-20190410019

PATIENT
  Age: 48 Year
  Sex: Male

DRUGS (1)
  1. LISTERINE COOL MINT ANTISEPTIC [Suspect]
     Active Substance: EUCALYPTOL\MENTHOL\METHYL SALICYLATE\THYMOL
     Indication: Product used for unknown indication
     Route: 048
     Dates: start: 20190401

REACTIONS (6)
  - Delirium [Unknown]
  - Product contamination physical [Unknown]
  - Dizziness [Unknown]
  - Visual impairment [Unknown]
  - Euphoric mood [Unknown]
  - Headache [Unknown]

NARRATIVE: CASE EVENT DATE: 20190101
